FAERS Safety Report 17771212 (Version 1)
Quarter: 2020Q2

REPORT INFORMATION
  Report Type: Spontaneous
  Country: US (occurrence: US)
  Receive Date: 20200512
  Receipt Date: 20200512
  Transmission Date: 20200714
  Serious: No
  Sender: FDA-Public Use
  Company Number: US-PERRIGO-20US005228

PATIENT
  Age: 80 Year
  Sex: Female
  Weight: 90.7 kg

DRUGS (11)
  1. CARVEDILOL. [Concomitant]
     Active Substance: CARVEDILOL
     Indication: HYPERTENSION
     Dosage: UNK
     Route: 065
     Dates: start: 202001
  2. LOSARTAN. [Concomitant]
     Active Substance: LOSARTAN
     Indication: HYPERTENSION
     Dosage: UNK
     Route: 065
  3. POTASSIUM [Concomitant]
     Active Substance: POTASSIUM
     Indication: SUPPLEMENTATION THERAPY
     Dosage: UNK
     Route: 065
  4. ATIVAN [Concomitant]
     Active Substance: LORAZEPAM
     Indication: INSOMNIA
  5. AMIODARONE [Concomitant]
     Active Substance: AMIODARONE
     Indication: ARRHYTHMIA
     Dosage: UNK
     Route: 065
     Dates: start: 202001
  6. SIMVASTATIN. [Concomitant]
     Active Substance: SIMVASTATIN
     Indication: BLOOD CHOLESTEROL INCREASED
     Dosage: UNK
     Route: 065
  7. XARELTO [Concomitant]
     Active Substance: RIVAROXABAN
     Indication: PROPHYLAXIS
     Dosage: UNK
     Route: 065
     Dates: start: 202001
  8. HYDROCHLOROTHIAZIDE. [Concomitant]
     Active Substance: HYDROCHLOROTHIAZIDE
     Indication: OEDEMA
     Dosage: UNK
     Route: 065
  9. LEVOTHYROXINE. [Concomitant]
     Active Substance: LEVOTHYROXINE
     Indication: HYPOTHYROIDISM
     Dosage: UNK
     Route: 065
     Dates: start: 202001
  10. PERMETHRIN. [Suspect]
     Active Substance: PERMETHRIN
     Indication: ACARODERMATITIS
     Dosage: LARGE AMOUNT, QD
     Route: 061
     Dates: start: 20200402, end: 20200403
  11. ATIVAN [Concomitant]
     Active Substance: LORAZEPAM
     Indication: ANXIETY
     Dosage: UNK
     Route: 065

REACTIONS (2)
  - Rash pruritic [Recovered/Resolved]
  - Inappropriate schedule of product administration [Recovered/Resolved with Sequelae]

NARRATIVE: CASE EVENT DATE: 20200402
